FAERS Safety Report 10053627 (Version 1)
Quarter: 2014Q2

REPORT INFORMATION
  Report Type: Spontaneous
  Country: US (occurrence: US)
  Receive Date: 20140402
  Receipt Date: 20140402
  Transmission Date: 20141212
  Serious: No
  Sender: FDA-Public Use
  Company Number: US-PFIZER INC-2014092114

PATIENT
  Age: 6 Year
  Sex: Female

DRUGS (2)
  1. QUILLIVANT XR [Suspect]
     Dosage: UNK, 1X/DAY
  2. QUILLIVANT XR [Suspect]
     Dosage: UNK, 2X/DAY

REACTIONS (1)
  - Drug effect incomplete [Unknown]
